FAERS Safety Report 23044017 (Version 2)
Quarter: 2023Q4

REPORT INFORMATION
  Report Type: Other
  Country: US (occurrence: None)
  Receive Date: 20231009
  Receipt Date: 20231031
  Transmission Date: 20240110
  Serious: Yes (Life-Threatening)
  Sender: FDA-Public Use
  Company Number: US-ROCHE-3424785

PATIENT
  Age: 80 Year
  Sex: Female
  Weight: 77.18 kg

DRUGS (17)
  1. VABYSMO [Suspect]
     Active Substance: FARICIMAB\FARICIMAB-SVOA
     Indication: Neovascular age-related macular degeneration
     Dosage: RIGHT EYE
     Route: 050
     Dates: start: 20230912
  2. VABYSMO [Suspect]
     Active Substance: FARICIMAB\FARICIMAB-SVOA
     Route: 050
  3. AVASTIN [Suspect]
     Active Substance: BEVACIZUMAB
     Indication: Neovascular age-related macular degeneration
     Route: 050
     Dates: start: 20230516, end: 20230620
  4. AVASTIN [Suspect]
     Active Substance: BEVACIZUMAB
     Route: 050
     Dates: start: 20230516, end: 20230620
  5. EYLEA [Suspect]
     Active Substance: AFLIBERCEPT
     Indication: Neovascular age-related macular degeneration
     Route: 050
  6. LOSARTAN [Concomitant]
     Active Substance: LOSARTAN
     Route: 048
  7. SPIRONOLACTONE [Concomitant]
     Active Substance: SPIRONOLACTONE
     Route: 048
  8. KLOR-CON [Concomitant]
     Active Substance: POTASSIUM CHLORIDE
     Dosage: 10MEQ
     Route: 048
  9. TIKOSYN [Concomitant]
     Active Substance: DOFETILIDE
  10. AREDS 2 FORMULA [Concomitant]
  11. FISH OIL [Concomitant]
     Active Substance: FISH OIL
  12. VITAMIN D2 [Concomitant]
     Active Substance: ERGOCALCIFEROL
  13. VITAMIN B COMPLEX [Concomitant]
     Active Substance: CYANOCOBALAMIN\DEXPANTHENOL\NIACINAMIDE\PYRIDOXINE HYDROCHLORIDE\RIBOFLAVIN 5^-PHOSPHATE SODIUM\THIA
  14. WARFARIN [Concomitant]
     Active Substance: WARFARIN
  15. MONTELUKAST [Concomitant]
     Active Substance: MONTELUKAST SODIUM
  16. OMEPRAZOLE [Concomitant]
     Active Substance: OMEPRAZOLE
  17. OXYGEN [Concomitant]
     Active Substance: OXYGEN

REACTIONS (4)
  - Atrial fibrillation [Not Recovered/Not Resolved]
  - Vision blurred [Not Recovered/Not Resolved]
  - Dry eye [Not Recovered/Not Resolved]
  - Off label use [Unknown]

NARRATIVE: CASE EVENT DATE: 20230523
